FAERS Safety Report 12579823 (Version 1)
Quarter: 2016Q3

REPORT INFORMATION
  Report Type: Spontaneous
  Country: CN (occurrence: CN)
  Receive Date: 20160721
  Receipt Date: 20160721
  Transmission Date: 20161109
  Serious: Yes (Death, Other)
  Sender: FDA-Public Use
  Company Number: CN-PFIZER INC-2016351520

PATIENT

DRUGS (3)
  1. MYCAMINE [Suspect]
     Active Substance: MICAFUNGIN SODIUM
     Indication: INFECTION PROPHYLAXIS
  2. ZYVOX [Suspect]
     Active Substance: LINEZOLID
     Indication: INFECTION PROPHYLAXIS
  3. TYGACIL [Suspect]
     Active Substance: TIGECYCLINE
     Indication: INFECTION PROPHYLAXIS

REACTIONS (4)
  - Pancreatitis [Fatal]
  - Jaundice [Unknown]
  - Cholestasis [Unknown]
  - Hepatitis E [Unknown]
